FAERS Safety Report 14569845 (Version 2)
Quarter: 2018Q2

REPORT INFORMATION
  Report Type: Not Available
  Country: US (occurrence: US)
  Receive Date: 20180224
  Receipt Date: 20180417
  Transmission Date: 20180711
  Serious: No
  Sender: FDA-Public Use
  Company Number: US-NEUROCRINE BIOSCIENCES INC.-2018NBI00172

PATIENT
  Age: 60 Year
  Sex: Female

DRUGS (3)
  1. INGREZZA [Suspect]
     Active Substance: VALBENAZINE
     Indication: TARDIVE DYSKINESIA
     Route: 048
     Dates: start: 20171208
  2. NEURONTIN [Concomitant]
     Active Substance: GABAPENTIN
  3. INVEGA SUSTENNA [Concomitant]
     Active Substance: PALIPERIDONE PALMITATE
     Route: 030

REACTIONS (3)
  - Abnormal dreams [Unknown]
  - Treatment noncompliance [Unknown]
  - Hallucination [Unknown]

NARRATIVE: CASE EVENT DATE: 201712
